FAERS Safety Report 7051496-0 (Version None)
Quarter: 2010Q4

REPORT INFORMATION
  Report Type: 
  Country: None (occurrence: None)
  Receive Date: 20101019
  Receipt Date: 20101008
  Transmission Date: 20110411
  Serious: Yes (Hospitalization)
  Sender: FDA-Public Use
  Company Number: B0679770A

PATIENT
  Sex: Female

DRUGS (3)
  1. AUGMENTIN '125' [Suspect]
     Indication: TONSILLITIS
     Route: 048
     Dates: start: 20101002, end: 20101002
  2. STEROIDS [Concomitant]
  3. ANTIHISTAMINE [Concomitant]

REACTIONS (2)
  - ABDOMINAL PAIN [None]
  - URTICARIA [None]
